FAERS Safety Report 4660516-X (Version None)
Quarter: 2005Q2

REPORT INFORMATION
  Report Type: 
  Country: None (occurrence: None)
  Receive Date: 20050511
  Receipt Date: 20050511
  Transmission Date: 20051028
  Serious: Yes (Hospitalization)
  Sender: FDA-Public Use
  Company Number: None

PATIENT
  Age: 66 Year
  Sex: Female
  Weight: 76 kg

DRUGS (5)
  1. DOCETAXEL [Suspect]
     Indication: BREAST CANCER STAGE IV
     Dosage: 75 MG/M2   Q 3 WEEKS   INTRAVENOUS
     Route: 042
     Dates: start: 20041222, end: 20050427
  2. IRESSA [Suspect]
     Indication: BREAST CANCER STAGE IV
     Dosage: 250MG  DAILY  ORAL
     Route: 048
     Dates: start: 20041222, end: 20050510
  3. PROTONIX [Concomitant]
  4. DECADRON [Concomitant]
  5. TAXOTERE [Concomitant]

REACTIONS (7)
  - ANOREXIA [None]
  - ASTHENIA [None]
  - COUGH [None]
  - FEBRILE NEUTROPENIA [None]
  - PNEUMONIA [None]
  - PYREXIA [None]
  - SYNCOPE [None]
